FAERS Safety Report 23413900 (Version 2)
Quarter: 2024Q3

REPORT INFORMATION
  Report Type: Spontaneous
  Country: CA (occurrence: CA)
  Receive Date: 20240117
  Receipt Date: 20240910
  Transmission Date: 20241016
  Serious: Yes (Hospitalization)
  Sender: TAKEDA
  Company Number: CA-TAKEDA-2024TUS004475

PATIENT
  Age: 53 Year
  Sex: Female
  Weight: 64 kg

DRUGS (2)
  1. MESALAMINE [Suspect]
     Active Substance: MESALAMINE
     Indication: Crohn^s disease
     Dosage: 2400 MILLIGRAM, BID
     Route: 048
     Dates: start: 20230731, end: 20230815
  2. MESALAMINE [Suspect]
     Active Substance: MESALAMINE
     Indication: Colitis

REACTIONS (4)
  - Malaise [Recovering/Resolving]
  - Electrocardiogram abnormal [Recovering/Resolving]
  - Troponin increased [Recovering/Resolving]
  - Myocarditis [Recovering/Resolving]

NARRATIVE: CASE EVENT DATE: 20230814
